FAERS Safety Report 21870866 (Version 3)
Quarter: 2024Q2

REPORT INFORMATION
  Report Type: Spontaneous
  Country: US (occurrence: US)
  Receive Date: 20230117
  Receipt Date: 20240406
  Transmission Date: 20240716
  Serious: Yes (Death, Hospitalization, Other)
  Sender: FDA-Public Use
  Company Number: US-AMNEAL PHARMACEUTICALS-2023-AMRX-00118

PATIENT
  Sex: Female
  Weight: 12.018 kg

DRUGS (10)
  1. VIGABATRIN [Suspect]
     Active Substance: VIGABATRIN
     Indication: Illness
     Dosage: 500 MILLIGRAM, 2 /DAY
     Route: 048
  2. VIGABATRIN [Suspect]
     Active Substance: VIGABATRIN
     Dosage: 500 MG IN THE MORNING AND 750 MG IN THE EVENING
     Route: 065
  3. VIGABATRIN [Suspect]
     Active Substance: VIGABATRIN
     Dosage: 750 MILLIGRAM , 2 /DAY
     Route: 048
  4. SABRIL [Concomitant]
     Active Substance: VIGABATRIN
     Indication: Product used for unknown indication
     Dosage: UNK
     Route: 065
  5. DESMOPRESSIN ACETATE [Concomitant]
     Active Substance: DESMOPRESSIN ACETATE
     Indication: Product used for unknown indication
     Dosage: 4 MCG/ML VIAL
     Route: 065
  6. LEVOTHYROXINE SODIUM [Concomitant]
     Active Substance: LEVOTHYROXINE SODIUM
     Indication: Product used for unknown indication
     Dosage: 25 MICROGRAM
     Route: 065
  7. CLOBAZAM [Concomitant]
     Active Substance: CLOBAZAM
     Indication: Product used for unknown indication
     Dosage: 2.5 MG/ML
     Route: 048
  8. LEVETIRACETAM [Concomitant]
     Active Substance: LEVETIRACETAM
     Indication: Product used for unknown indication
     Dosage: 100 MG/ML SOLUTION
     Route: 065
  9. PHENOBARBITAL [Concomitant]
     Active Substance: PHENOBARBITAL
     Indication: Product used for unknown indication
     Dosage: 20 MG/ML
     Route: 065
  10. CLONAZEPAM [Concomitant]
     Active Substance: CLONAZEPAM
     Indication: Product used for unknown indication
     Dosage: 0.125 MILLIGRAM
     Route: 065

REACTIONS (4)
  - Death [Fatal]
  - Adverse event [Unknown]
  - Stress [Unknown]
  - Seizure [Unknown]
